FAERS Safety Report 5885269-9 (Version None)
Quarter: 2008Q3

REPORT INFORMATION
  Report Type: 
  Country: None (occurrence: None)
  Receive Date: 20080915
  Receipt Date: 20080915
  Transmission Date: 20090109
  Serious: Yes (Life-Threatening)
  Sender: FDA-Public Use
  Company Number: None

PATIENT
  Age: 45 Year
  Sex: Female
  Weight: 53.978 kg

DRUGS (1)
  1. ZOLPIDEM TARTRATE [Suspect]
     Indication: INSOMNIA
     Dosage: 10MG OCCASIONALLY PO
     Route: 048
     Dates: start: 20080313, end: 20080906

REACTIONS (6)
  - ABNORMAL SLEEP-RELATED EVENT [None]
  - ALCOHOL USE [None]
  - AMNESIA [None]
  - IMPRISONMENT [None]
  - PHARMACEUTICAL PRODUCT COMPLAINT [None]
  - SOMNAMBULISM [None]
